FAERS Safety Report 4348832-2 (Version None)
Quarter: 2004Q2

REPORT INFORMATION
  Report Type: 
  Country: None (occurrence: None)
  Receive Date: 20040423
  Receipt Date: 20040414
  Transmission Date: 20050107
  Serious: Yes (Disabling)
  Sender: FDA-Public Use
  Company Number: 2004205698SE

PATIENT
  Age: 22 Year
  Sex: Male
  Weight: 136 kg

DRUGS (5)
  1. GENOTROPIN [Suspect]
     Indication: HYPOPITUITARISM
     Dosage: 16.8 IU/WEEK
     Dates: start: 19880302, end: 20010504
  2. DESMOPRESSIN (DESMOPRESSIN) [Concomitant]
  3. LEVOTHYROXINE SODIUM [Concomitant]
  4. HYDROCORTISONE [Concomitant]
  5. TESTOSTERONE [Concomitant]

REACTIONS (7)
  - BLOOD THYROID STIMULATING HORMONE DECREASED [None]
  - BRAIN OEDEMA [None]
  - CRANIOPHARYNGIOMA [None]
  - HYDROCEPHALUS [None]
  - NEOPLASM RECURRENCE [None]
  - THYROXINE DECREASED [None]
  - WEIGHT INCREASED [None]
